FAERS Safety Report 5527463-2 (Version None)
Quarter: 2007Q4

REPORT INFORMATION
  Report Type: 
  Country: None (occurrence: None)
  Receive Date: 20071128
  Receipt Date: 20071119
  Transmission Date: 20080405
  Serious: Yes (Hospitalization, Other)
  Sender: FDA-Public Use
  Company Number: PHBS2007KR18444

PATIENT
  Age: 58 Year
  Sex: Male

DRUGS (1)
  1. STALEVO 100 [Suspect]
     Indication: PARKINSON'S DISEASE
     Route: 065

REACTIONS (4)
  - DRUG DEPENDENCE [None]
  - HYPERPYREXIA [None]
  - MENTAL DISORDER [None]
  - PYREXIA [None]
